FAERS Safety Report 6243270-X (Version None)
Quarter: 2009Q2

REPORT INFORMATION
  Report Type: 
  Country: None (occurrence: None)
  Receive Date: 20090624
  Receipt Date: 20090610
  Transmission Date: 20091009
  Serious: Yes (Disabling, Other)
  Sender: FDA-Public Use
  Company Number: PHHY2009FR19058

PATIENT
  Sex: Female

DRUGS (3)
  1. FEMARA [Suspect]
     Indication: BREAST CANCER
     Dosage: 1 DF, QD
     Dates: start: 20080901
  2. CALCIUM [Concomitant]
     Dosage: 2 DF DAILY
     Route: 048
  3. VITAMINE D3 B.O.N. [Concomitant]
     Dosage: 2 DOSAGE FORM DAILY
     Route: 048
     Dates: start: 20081001

REACTIONS (10)
  - ALOPECIA [None]
  - ANGIOPATHY [None]
  - ARTHRALGIA [None]
  - BREAST PAIN [None]
  - CARDIOVASCULAR DISORDER [None]
  - DYSSTASIA [None]
  - FATIGUE [None]
  - HOT FLUSH [None]
  - JOINT STIFFNESS [None]
  - OEDEMA PERIPHERAL [None]
